FAERS Safety Report 7068692-9 (Version None)
Quarter: 2010Q4

REPORT INFORMATION
  Report Type: 
  Country: None (occurrence: None)
  Receive Date: 20101028
  Receipt Date: 20101022
  Transmission Date: 20110411
  Serious: Yes (Other)
  Sender: FDA-Public Use
  Company Number: FR-PFIZER INC-2010134307

PATIENT
  Age: 47 Year
  Sex: Male

DRUGS (3)
  1. VFEND [Suspect]
     Indication: CANDIDIASIS
     Dosage: 200 MG, 2X/DAY
     Route: 042
     Dates: start: 20100905, end: 20100911
  2. EPIRUBICIN [Concomitant]
     Dosage: UNK
     Dates: start: 20100903, end: 20100903
  3. CISPLATIN [Concomitant]
     Dosage: UNK
     Dates: start: 20100903, end: 20100904

REACTIONS (3)
  - CONFUSIONAL STATE [None]
  - HALLUCINATION [None]
  - PARANOIA [None]
